FAERS Safety Report 11422368 (Version 1)
Quarter: 2015Q3

REPORT INFORMATION
  Report Type: Spontaneous
  Country: US (occurrence: US)
  Receive Date: 20150827
  Receipt Date: 20150827
  Transmission Date: 20151125
  Serious: No
  Sender: FDA-Public Use
  Company Number: US-PFIZER INC-2015276354

PATIENT
  Sex: Female

DRUGS (3)
  1. LYRICA [Suspect]
     Active Substance: PREGABALIN
     Indication: NEURALGIA
  2. LYRICA [Suspect]
     Active Substance: PREGABALIN
     Indication: SPINAL CORD INJURY
     Dosage: UNK, 1X/DAY (AT NIGHT)
  3. OXYCODON [Concomitant]
     Active Substance: OXYCODONE
     Dosage: UNK, 1X/DAY (DURING THE DAY)

REACTIONS (1)
  - Somnolence [Unknown]
